FAERS Safety Report 7678709-6 (Version None)
Quarter: 2011Q3

REPORT INFORMATION
  Report Type: 
  Country: None (occurrence: None)
  Receive Date: 20110811
  Receipt Date: 20110802
  Transmission Date: 20111222
  Serious: Yes (Other)
  Sender: FDA-Public Use
  Company Number: CN-ASTRAZENECA-2011SE45142

PATIENT
  Sex: Male

DRUGS (1)
  1. LIDOCAINE [Suspect]
     Indication: ACUTE MYOCARDIAL INFARCTION
     Dosage: 200-500 MG IN 5 % GLUCOSE
     Route: 042

REACTIONS (11)
  - LOGORRHOEA [None]
  - INTELLECTUALISATION [None]
  - MENTAL IMPAIRMENT [None]
  - RESTLESSNESS [None]
  - INJURY [None]
  - LOSS OF CONSCIOUSNESS [None]
  - SOMNOLENCE [None]
  - TOXICITY TO VARIOUS AGENTS [None]
  - PARAESTHESIA [None]
  - AGITATION [None]
  - FEELING ABNORMAL [None]
